FAERS Safety Report 16991705 (Version 1)
Quarter: 2019Q4

REPORT INFORMATION
  Report Type: Spontaneous
  Country: US (occurrence: US)
  Receive Date: 20191104
  Receipt Date: 20191104
  Transmission Date: 20200122
  Serious: No
  Sender: FDA-Public Use
  Company Number: US-ROCHE-2190254

PATIENT
  Sex: Male
  Weight: 90.35 kg

DRUGS (2)
  1. PULMOZYME [Suspect]
     Active Substance: DORNASE ALFA
     Dosage: ONGOING: YES
     Route: 065
     Dates: start: 20180719
  2. PULMOZYME [Suspect]
     Active Substance: DORNASE ALFA
     Indication: CYSTIC FIBROSIS
     Dosage: ONGOING: NO
     Route: 065
     Dates: start: 2006, end: 2006

REACTIONS (2)
  - Therapy non-responder [Unknown]
  - No adverse event [Unknown]
